FAERS Safety Report 8594408-0 (Version None)
Quarter: 2012Q3

REPORT INFORMATION
  Report Type: 
  Country: None (occurrence: None)
  Receive Date: 20120815
  Receipt Date: 20120807
  Transmission Date: 20120928
  Serious: No
  Sender: FDA-Public Use
  Company Number: 2007BI026345

PATIENT
  Age: 49 Year
  Sex: Female

DRUGS (1)
  1. AVONEX [Suspect]
     Indication: MULTIPLE SCLEROSIS
     Route: 030
     Dates: start: 20070803

REACTIONS (4)
  - VIBRATORY SENSE INCREASED [None]
  - BURNING SENSATION [None]
  - SKIN WRINKLING [None]
  - HYPOAESTHESIA [None]
